FAERS Safety Report 9629121 (Version 1)
Quarter: 2013Q4

REPORT INFORMATION
  Report Type: Spontaneous
  Country: US (occurrence: US)
  Receive Date: 20131017
  Receipt Date: 20131017
  Transmission Date: 20140711
  Serious: No
  Sender: FDA-Public Use
  Company Number: US-BAXTER-2013BAX026060

PATIENT
  Age: 81 Year
  Sex: Female

DRUGS (4)
  1. DIANEAL LOW CALCIUM [Suspect]
     Indication: PERITONEAL DIALYSIS
     Dosage: 2 BAGS (ALTERNATES BETWEEN 1.5% AND 2.5%)
     Route: 033
     Dates: start: 201211
  2. DIANEAL LOW CALCIUM [Suspect]
     Route: 033
  3. DIANEAL LOW CALCIUM [Suspect]
     Indication: PERITONEAL DIALYSIS
     Dosage: 2 BAGS (ALTERNATES BETWEEN 1.5% AND 2.5%)
     Route: 033
     Dates: start: 201211
  4. DIANEAL LOW CALCIUM [Suspect]
     Route: 033

REACTIONS (1)
  - Joint swelling [Recovering/Resolving]
